FAERS Safety Report 17939688 (Version 1)
Quarter: 2020Q2

REPORT INFORMATION
  Report Type: Spontaneous
  Country: BE (occurrence: BE)
  Receive Date: 20200624
  Receipt Date: 20200624
  Transmission Date: 20200714
  Serious: Yes (Other)
  Sender: FDA-Public Use
  Company Number: NVSC2020BE175825

PATIENT
  Age: 41 Year
  Sex: Female

DRUGS (3)
  1. FAVIPIRAVIR [Concomitant]
     Active Substance: FAVIPIRAVIR
     Indication: ARGENTINE HAEMORRHAGIC FEVER
     Dosage: 2,000 MG LOADING DOSE, FOLLOWED BY 1,200 MG BID
     Route: 065
     Dates: start: 2020
  2. RIBAVIRIN. [Suspect]
     Active Substance: RIBAVIRIN
     Indication: ARGENTINE HAEMORRHAGIC FEVER
     Dosage: UNK
     Route: 042
     Dates: start: 2020
  3. RIBAVIRIN. [Suspect]
     Active Substance: RIBAVIRIN
     Dosage: UNK
     Route: 048

REACTIONS (2)
  - Product use in unapproved indication [Unknown]
  - Haemolytic anaemia [Unknown]

NARRATIVE: CASE EVENT DATE: 2020
